FAERS Safety Report 13214323 (Version 3)
Quarter: 2017Q3

REPORT INFORMATION
  Report Type: Report from Study
  Country: US (occurrence: US)
  Receive Date: 20170210
  Receipt Date: 20170706
  Transmission Date: 20171127
  Serious: Yes (Hospitalization, Other)
  Sender: FDA-Public Use
  Company Number: US-EXELIXIS-XL18417008194

PATIENT
  Age: 31 Year
  Sex: Male
  Weight: 108.9 kg

DRUGS (3)
  1. XL184 [Suspect]
     Active Substance: CABOZANTINIB
     Indication: TRANSITIONAL CELL CARCINOMA
     Dosage: 60 MG, QD
     Route: 048
     Dates: start: 20161007, end: 20161211
  2. NIVOLUMAB [Suspect]
     Active Substance: NIVOLUMAB
     Indication: PENILE CANCER
     Dosage: 3 MG/KG OVER 60 MINUTES ON DAY 1
     Route: 042
     Dates: start: 20161007, end: 20161121
  3. IPILIMUMAB [Suspect]
     Active Substance: IPILIMUMAB
     Indication: TRANSITIONAL CELL CARCINOMA
     Dosage: 1 MG/KG OVER 90 MINUTES ON DAY 1
     Route: 042
     Dates: start: 20161007, end: 20161121

REACTIONS (5)
  - Blood bilirubin increased [Recovered/Resolved]
  - Blood alkaline phosphatase increased [Recovered/Resolved]
  - Aspartate aminotransferase increased [Recovered/Resolved]
  - Alanine aminotransferase increased [Recovered/Resolved]
  - Sepsis [Unknown]

NARRATIVE: CASE EVENT DATE: 20161215
